FAERS Safety Report 9035992 (Version 1)
Quarter: 2013Q1

REPORT INFORMATION
  Report Type: Report from Study
  Country: US (occurrence: US)
  Receive Date: 20130129
  Receipt Date: 20130129
  Transmission Date: 20140127
  Serious: No
  Sender: FDA-Public Use
  Company Number: US-ABBOTT-12P-163-0919138-00

PATIENT
  Sex: Male
  Weight: 108.96 kg

DRUGS (8)
  1. HUMIRA 40 MG/0.8 ML PEN [Suspect]
     Indication: IMMUNE SYSTEM DISORDER
     Dates: start: 2010, end: 201103
  2. HUMIRA 40 MG/0.8 ML PEN [Suspect]
     Indication: SPONDYLOARTHROPATHY
     Dates: start: 201103, end: 201201
  3. HUMIRA 40 MG/0.8 ML PEN [Suspect]
     Indication: PSORIATIC ARTHROPATHY
  4. LISINOPRIL [Concomitant]
     Indication: HYPERTENSION
  5. TRAMADOL [Concomitant]
     Indication: SWELLING
  6. SIMVASTATIN [Concomitant]
     Indication: BLOOD CHOLESTEROL INCREASED
  7. POTASSIUM CHLORIDE [Concomitant]
     Indication: BLOOD POTASSIUM DECREASED
  8. CARVEDILOL [Concomitant]
     Indication: HEART RATE INCREASED
     Dates: start: 2010

REACTIONS (6)
  - Arthralgia [Not Recovered/Not Resolved]
  - Drug effect decreased [Not Recovered/Not Resolved]
  - Arthropathy [Not Recovered/Not Resolved]
  - Dysstasia [Unknown]
  - Abasia [Unknown]
  - Off label use [Not Recovered/Not Resolved]
